FAERS Safety Report 5269128-0 (Version None)
Quarter: 2007Q1

REPORT INFORMATION
  Report Type: 
  Country: None (occurrence: None)
  Receive Date: 20070319
  Receipt Date: 20070309
  Transmission Date: 20070707
  Serious: Yes (Life-Threatening, Hospitalization)
  Sender: FDA-Public Use
  Company Number: JP-BRISTOL-MYERS SQUIBB COMPANY-13718200

PATIENT
  Age: 39 Year
  Sex: Female

DRUGS (1)
  1. IFOMIDE [Suspect]
     Indication: MALIGNANT SOFT TISSUE NEOPLASM
     Route: 041
     Dates: start: 20070201, end: 20070203

REACTIONS (5)
  - DEPRESSED LEVEL OF CONSCIOUSNESS [None]
  - DISORIENTATION [None]
  - ENCEPHALOPATHY [None]
  - HYPERAMMONAEMIA [None]
  - RHABDOMYOLYSIS [None]
